FAERS Safety Report 5052169-6 (Version None)
Quarter: 2006Q3

REPORT INFORMATION
  Report Type: 
  Country: None (occurrence: None)
  Receive Date: 20060712
  Receipt Date: 20060712
  Transmission Date: 20061208
  Serious: Yes (Other)
  Sender: FDA-Public Use
  Company Number: None

PATIENT
  Age: 68 Year
  Sex: Male
  Weight: 74.8435 kg

DRUGS (7)
  1. SULAR [Suspect]
     Indication: HYPERTENSION
     Dosage: ONE TABLET DAILY
     Dates: start: 20060509
  2. HYDROCHLOROTHIAZIDE [Concomitant]
  3. TRICOR [Concomitant]
  4. NEXIUM [Concomitant]
  5. ASPIRIN [Concomitant]
  6. ZINC [Concomitant]
  7. ECHINACEA [Concomitant]

REACTIONS (1)
  - RECTAL HAEMORRHAGE [None]
